FAERS Safety Report 18197708 (Version 1)
Quarter: 2020Q3

REPORT INFORMATION
  Report Type: Spontaneous
  Country: US (occurrence: US)
  Receive Date: 20200826
  Receipt Date: 20200826
  Transmission Date: 20201103
  Serious: No
  Sender: FDA-Public Use
  Company Number: US-PFIZER INC-2020328762

PATIENT
  Age: 77 Year
  Sex: Female

DRUGS (1)
  1. IBRANCE [Suspect]
     Active Substance: PALBOCICLIB
     Indication: PLEURAL EFFUSION
     Dosage: 75 MG
     Dates: start: 20200501

REACTIONS (5)
  - Dyspnoea [Unknown]
  - Cough [Unknown]
  - Off label use [Unknown]
  - Musculoskeletal chest pain [Unknown]
  - Product use in unapproved indication [Unknown]

NARRATIVE: CASE EVENT DATE: 2020
